FAERS Safety Report 6934866-8 (Version None)
Quarter: 2010Q3

REPORT INFORMATION
  Report Type: 
  Country: None (occurrence: None)
  Receive Date: 20100820
  Receipt Date: 20100806
  Transmission Date: 20110219
  Serious: Yes (Disabling)
  Sender: FDA-Public Use
  Company Number: PHHY2010IT42899

PATIENT
  Sex: Male

DRUGS (8)
  1. ZOMETA [Suspect]
     Indication: METASTASES TO BONE
     Dosage: CYCLIC DOSAGE 4 MG
     Route: 042
     Dates: start: 20100118, end: 20100312
  2. DELTACORTENE [Suspect]
     Indication: NON-HODGKIN'S LYMPHOMA UNSPECIFIED HISTOLOGY INDOLENT STAGE IV
     Dosage: CYCLIC DOSAGE 100 MG
     Dates: start: 20091030, end: 20100305
  3. CYCLOPHOSPHAMIDE [Concomitant]
     Indication: NON-HODGKIN'S LYMPHOMA UNSPECIFIED HISTOLOGY INDOLENT STAGE IV
     Dosage: 800 MG, UNK
     Route: 042
     Dates: start: 20091030, end: 20100305
  4. VINCRISTINE [Concomitant]
     Indication: NON-HODGKIN'S LYMPHOMA UNSPECIFIED HISTOLOGY INDOLENT STAGE IV
     Dosage: 2 MG, UNK
     Route: 042
     Dates: start: 20091030, end: 20100305
  5. RABEPRAZOLE SODIUM [Concomitant]
     Dosage: 20 MG, UNK
     Route: 048
     Dates: start: 20091001, end: 20100511
  6. TRAMADOL HCL [Concomitant]
     Indication: BACK PAIN
     Dosage: 90 DRP, UNK
     Dates: start: 20091120, end: 20100511
  7. METFORMIN [Concomitant]
     Indication: DIABETES MELLITUS
     Dosage: 1500 MG, UNK
     Route: 048
     Dates: start: 20091101, end: 20100511
  8. MABTHERA [Concomitant]
     Indication: NON-HODGKIN'S LYMPHOMA UNSPECIFIED HISTOLOGY INDOLENT STAGE IV
     Dosage: 500 MG, UNK
     Route: 042
     Dates: start: 20091030, end: 20100305

REACTIONS (3)
  - DENTAL CARIES [None]
  - OSTEONECROSIS OF JAW [None]
  - TOOTH LOSS [None]
